FAERS Safety Report 5626241-3 (Version None)
Quarter: 2008Q1

REPORT INFORMATION
  Report Type: 
  Country: None (occurrence: None)
  Receive Date: 20080214
  Receipt Date: 20080212
  Transmission Date: 20080703
  Serious: Yes (Other)
  Sender: FDA-Public Use
  Company Number: B0507884A

PATIENT
  Sex: Male

DRUGS (10)
  1. CARVEDILOL [Suspect]
     Indication: DRUG USE FOR UNKNOWN INDICATION
     Route: 065
  2. ALDOMET [Concomitant]
  3. COZAAR [Concomitant]
  4. EMCONCOR [Concomitant]
  5. FURIX [Concomitant]
  6. NORVASC [Concomitant]
  7. PHYSIOTENS [Concomitant]
  8. SELO-ZOK [Concomitant]
  9. VIVATEC [Concomitant]
  10. ZANIDIP [Concomitant]

REACTIONS (2)
  - COLITIS ULCERATIVE [None]
  - HEADACHE [None]
